FAERS Safety Report 7306272-8 (Version None)
Quarter: 2011Q1

REPORT INFORMATION
  Report Type: 
  Country: None (occurrence: None)
  Receive Date: 20110222
  Receipt Date: 20110209
  Transmission Date: 20110831
  Serious: Yes (Other)
  Sender: FDA-Public Use
  Company Number: PHHY2011US06929

PATIENT
  Sex: Female

DRUGS (4)
  1. AFINITOR [Suspect]
     Indication: ASTROCYTOMA
     Dosage: 5 MG, QD
     Route: 048
     Dates: start: 20110108
  2. KEPPRA [Concomitant]
     Dosage: UNK
  3. VENPAT [Concomitant]
     Dosage: UNK
  4. RAPAMUNE [Concomitant]

REACTIONS (3)
  - INFANTILE SPASMS [None]
  - RASH [None]
  - DRY SKIN [None]
